APPROVED DRUG PRODUCT: DURAPHYL
Active Ingredient: THEOPHYLLINE
Strength: 200MG
Dosage Form/Route: TABLET, EXTENDED RELEASE;ORAL
Application: A088504 | Product #001
Applicant: FOREST LABORATORIES INC
Approved: Apr 3, 1985 | RLD: No | RS: No | Type: DISCN